FAERS Safety Report 7002574-3 (Version None)
Quarter: 2010Q3

REPORT INFORMATION
  Report Type: 
  Country: None (occurrence: None)
  Receive Date: 20100920
  Receipt Date: 20100623
  Transmission Date: 20110219
  Serious: Yes (Other)
  Sender: FDA-Public Use
  Company Number: US-ASTRAZENECA-2010SE29710

PATIENT
  Age: 62 Year
  Sex: Male

DRUGS (3)
  1. SEROQUEL [Suspect]
     Indication: POST-TRAUMATIC STRESS DISORDER
     Route: 048
  2. CELEXA [Concomitant]
  3. PRAZOSIN HCL [Concomitant]

REACTIONS (1)
  - ELECTROCARDIOGRAM QT INTERVAL [None]
